FAERS Safety Report 7247754-7 (Version None)
Quarter: 2011Q1

REPORT INFORMATION
  Report Type: 
  Country: None (occurrence: None)
  Receive Date: 20110127
  Receipt Date: 20110119
  Transmission Date: 20110831
  Serious: Yes (Other)
  Sender: FDA-Public Use
  Company Number: US-JNJFOC-20101207264

PATIENT
  Sex: Female
  Weight: 81.19 kg

DRUGS (18)
  1. DURAGESIC-50 [Concomitant]
     Indication: PAIN
     Route: 062
  2. REMICADE [Suspect]
     Route: 042
  3. TRAZODONE [Concomitant]
     Indication: SLEEP DISORDER THERAPY
     Route: 048
  4. MOBIC [Concomitant]
     Indication: PAIN
     Route: 048
  5. OXYCODONE [Concomitant]
     Indication: PAIN
     Route: 048
  6. NORVASC [Concomitant]
     Indication: HYPERTENSION
     Route: 048
  7. PROZAC [Concomitant]
     Indication: PAIN
     Route: 048
  8. PLAQUENIL [Concomitant]
     Indication: RHEUMATOID ARTHRITIS
     Route: 048
  9. LEVOTHYROXINE SODIUM [Concomitant]
     Indication: HYPOTHYROIDISM
     Route: 048
  10. LABETALOL HCL [Concomitant]
     Indication: HYPERTENSION
     Route: 048
  11. VITAMIN D [Concomitant]
     Indication: NUTRITIONAL SUPPORT
     Route: 048
  12. REMICADE [Suspect]
     Indication: RHEUMATOID ARTHRITIS
     Route: 042
  13. COZAAR [Concomitant]
     Indication: HYPERTENSION
     Route: 048
  14. RESTASIS [Concomitant]
     Indication: DRY EYE
     Route: 047
  15. NORETHINDRONE [Concomitant]
     Indication: HORMONE REPLACEMENT THERAPY
     Route: 048
  16. SOMA [Concomitant]
     Route: 048
  17. CARDURA [Concomitant]
     Indication: HYPERTENSION
     Route: 048
  18. CENESTIN [Concomitant]
     Indication: HORMONE REPLACEMENT THERAPY
     Route: 048

REACTIONS (9)
  - LIMB OPERATION [None]
  - WEIGHT INCREASED [None]
  - FOOD CRAVING [None]
  - DYSGEUSIA [None]
  - STOMATITIS [None]
  - FLUID RETENTION [None]
  - INFLAMMATION [None]
  - CHEILITIS [None]
  - MOLLUSCUM CONTAGIOSUM [None]
